FAERS Safety Report 11749762 (Version 1)
Quarter: 2015Q4

REPORT INFORMATION
  Report Type: Spontaneous
  Country: DK (occurrence: CH)
  Receive Date: 20151118
  Receipt Date: 20151118
  Transmission Date: 20160304
  Serious: Yes (Other)
  Sender: FDA-Public Use
  Company Number: CH-FRI-1000080850

PATIENT
  Age: 64 Year
  Sex: Male

DRUGS (5)
  1. BRILIQUE (TICAGRELOR) [Concomitant]
     Active Substance: TICAGRELOR
     Indication: CORONARY ARTERIAL STENT INSERTION
     Dosage: 180 MG
     Route: 048
     Dates: start: 20150707, end: 20150924
  2. ESCITALOPRAM [Suspect]
     Active Substance: ESCITALOPRAM OXALATE
     Indication: DEPRESSION
     Dosage: 20 MG
     Route: 048
     Dates: start: 2010, end: 20150924
  3. CRESTOR [Concomitant]
     Active Substance: ROSUVASTATIN CALCIUM
     Indication: HYPERCHOLESTEROLAEMIA
     Dosage: 10 MG
     Route: 048
     Dates: start: 2015
  4. ASPIRIN (ACETYLSALICYLIC ACID) [Concomitant]
     Active Substance: ASPIRIN
     Indication: CORONARY ARTERY DISEASE
     Dosage: 100 MG
     Route: 048
     Dates: start: 2015
  5. LISITRIL COMP. (HYDROCHLORITHIAZIDE/LISINOPRIL) [Concomitant]
     Indication: HYPERTENSION
     Route: 048
     Dates: start: 2015

REACTIONS (1)
  - Chronotropic incompetence [Unknown]

NARRATIVE: CASE EVENT DATE: 20150924
